FAERS Safety Report 10526429 (Version 1)
Quarter: 2014Q4

REPORT INFORMATION
  Report Type: Spontaneous
  Country: US (occurrence: US)
  Receive Date: 20141020
  Receipt Date: 20141020
  Transmission Date: 20150528
  Serious: No
  Sender: FDA-Public Use
  Company Number: US-AMGEN INC.-USASP2014079522

PATIENT
  Age: 70 Year
  Sex: Male
  Weight: 43 kg

DRUGS (10)
  1. METHYLPREDNISOLONE. [Concomitant]
     Active Substance: METHYLPREDNISOLONE
     Dosage: ONE 5-6 MG TABLET A DAY
  2. PROPRANOLOL [Concomitant]
     Active Substance: PROPRANOLOL\PROPRANOLOL HYDROCHLORIDE
     Indication: HEART RATE INCREASED
     Dosage: 5 MG (HALF OF A 10 MG TABLET) A DAY
  3. TYLENOL [Concomitant]
     Active Substance: ACETAMINOPHEN
     Dosage: TWO 500MG TABLETS THREE TIMES A DAY
  4. ARIVA [Concomitant]
     Dosage: UNK
  5. LORAZEPAM. [Concomitant]
     Active Substance: LORAZEPAM
     Indication: MUSCULOSKELETAL DISCOMFORT
     Dosage: 1 MG TABLET - TAKES 1 TO 1.5 TABLETS A DAY
  6. METHOTREXATE [Concomitant]
     Active Substance: METHOTREXATE
     Dosage: UNK
  7. HUMIRA [Concomitant]
     Active Substance: ADALIMUMAB
     Dosage: UNK
  8. PROXIL [Concomitant]
  9. ORENCIA [Concomitant]
     Active Substance: ABATACEPT
     Dosage: UNK
  10. ENBREL [Suspect]
     Active Substance: ETANERCEPT
     Indication: PRODUCT USED FOR UNKNOWN INDICATION
     Dosage: UNK
     Route: 065

REACTIONS (20)
  - Abdominal pain upper [Recovered/Resolved]
  - Muscular weakness [Not Recovered/Not Resolved]
  - Diarrhoea [Recovered/Resolved]
  - Drug ineffective [Unknown]
  - Eye disorder [Unknown]
  - Viral infection [Unknown]
  - Osteoporosis [Unknown]
  - Dizziness [Unknown]
  - Arthralgia [Unknown]
  - Eating disorder [Unknown]
  - Headache [Recovered/Resolved]
  - Muscle disorder [Unknown]
  - Disorientation [Unknown]
  - Balance disorder [Unknown]
  - Heart rate increased [Unknown]
  - Myalgia [Unknown]
  - Feeling abnormal [Unknown]
  - Fibromyalgia [Unknown]
  - Musculoskeletal discomfort [Not Recovered/Not Resolved]
  - Blood pressure abnormal [Unknown]

NARRATIVE: CASE EVENT DATE: 2004
